FAERS Safety Report 12594066 (Version 1)
Quarter: 2016Q3

REPORT INFORMATION
  Report Type: Spontaneous
  Country: US (occurrence: US)
  Receive Date: 20160726
  Receipt Date: 20160726
  Transmission Date: 20161109
  Serious: No
  Sender: FDA-Public Use
  Company Number: US-TEVA-670802USA

PATIENT
  Sex: Female

DRUGS (1)
  1. PROAIR RESPICLICK [Suspect]
     Active Substance: ALBUTEROL SULFATE
     Indication: BRONCHITIS
     Route: 065

REACTIONS (4)
  - Dysgeusia [Unknown]
  - Product use issue [Unknown]
  - Incorrect product storage [Unknown]
  - Product physical issue [Unknown]
